FAERS Safety Report 9394661 (Version 3)
Quarter: 2013Q3

REPORT INFORMATION
  Report Type: Spontaneous
  Country: FR (occurrence: FR)
  Receive Date: 20130711
  Receipt Date: 20130814
  Transmission Date: 20140515
  Serious: Yes (Other)
  Sender: FDA-Public Use
  Company Number: FR-009507513-1307FRA001647

PATIENT
  Age: 54 Year
  Sex: Female

DRUGS (6)
  1. MONTELUKAST [Suspect]
     Dosage: 10 MG, QD
     Route: 048
  2. INNOVAIR [Concomitant]
     Indication: PRODUCT USED FOR UNKNOWN INDICATION
  3. VENTOLINE (ALBUTEROL) [Concomitant]
     Indication: PRODUCT USED FOR UNKNOWN INDICATION
  4. UVEDOSE [Concomitant]
     Indication: PRODUCT USED FOR UNKNOWN INDICATION
  5. RAMIPRIL [Concomitant]
     Indication: PRODUCT USED FOR UNKNOWN INDICATION
  6. NIFEDINE [Concomitant]
     Indication: PRODUCT USED FOR UNKNOWN INDICATION

REACTIONS (2)
  - Asthmatic crisis [Recovered/Resolved]
  - Drug ineffective [Recovered/Resolved]
